FAERS Safety Report 6853893-2 (Version None)
Quarter: 2010Q3

REPORT INFORMATION
  Report Type: 
  Country: None (occurrence: None)
  Receive Date: 20100717
  Receipt Date: 20080112
  Transmission Date: 20110219
  Serious: No
  Sender: FDA-Public Use
  Company Number: US-PFIZER INC-2007106005

PATIENT
  Sex: Female
  Weight: 108.9 kg

DRUGS (8)
  1. CHANTIX [Suspect]
     Indication: SMOKING CESSATION THERAPY
     Dates: start: 20071206, end: 20071211
  2. ALL OTHER THERAPEUTIC PRODUCTS [Concomitant]
  3. ALL OTHER THERAPEUTIC PRODUCTS [Concomitant]
  4. LORAZEPAM [Concomitant]
  5. TRAZODONE HYDROCHLORIDE [Concomitant]
  6. LIPITOR [Concomitant]
  7. LISINOPRIL [Concomitant]
  8. METOPROLOL [Concomitant]

REACTIONS (7)
  - ANXIETY [None]
  - DEPRESSED MOOD [None]
  - EMOTIONAL DISORDER [None]
  - INSOMNIA [None]
  - MENTAL DISORDER [None]
  - NAUSEA [None]
  - NIGHTMARE [None]
